FAERS Safety Report 25764545 (Version 1)
Quarter: 2025Q3

REPORT INFORMATION
  Report Type: Spontaneous
  Country: US (occurrence: US)
  Receive Date: 20250905
  Receipt Date: 20250905
  Transmission Date: 20251021
  Serious: No
  Sender: DOMPE FARMACEUTICI
  Company Number: US-FARMAPROD-202502-0411

PATIENT
  Age: 73 Year
  Sex: Female
  Weight: 84.28 kg

DRUGS (18)
  1. OXERVATE [Suspect]
     Active Substance: CENEGERMIN-BKBJ
     Indication: Neurotrophic keratopathy
     Route: 047
     Dates: start: 20250114
  2. OXERVATE [Suspect]
     Active Substance: CENEGERMIN-BKBJ
     Indication: Corneal abrasion
  3. OXERVATE [Suspect]
     Active Substance: CENEGERMIN-BKBJ
  4. DOXYCYCLINE HYCLATE [Concomitant]
     Active Substance: DOXYCYCLINE HYCLATE
  5. LISINOPRIL-HYDROCHLOROTHIAZIDA [Concomitant]
  6. ERYTHROMYCIN [Concomitant]
     Active Substance: ERYTHROMYCIN
  7. CLOTRIMAZOLE [Concomitant]
     Active Substance: CLOTRIMAZOLE
  8. NYSTATIN [Concomitant]
     Active Substance: NYSTATIN
  9. ROSUVASTATIN CALCIUM [Concomitant]
     Active Substance: ROSUVASTATIN CALCIUM
  10. DEXAMETHASONE [Concomitant]
     Active Substance: DEXAMETHASONE
  11. CLOBETASOL PROPIONATE [Concomitant]
     Active Substance: CLOBETASOL PROPIONATE
  12. DAPSONE [Concomitant]
     Active Substance: DAPSONE
  13. HUMALOG [Concomitant]
     Active Substance: INSULIN LISPRO
  14. LOTEPREDNOL ETABONATE [Concomitant]
     Active Substance: LOTEPREDNOL ETABONATE
  15. ALREX [Concomitant]
     Active Substance: LOTEPREDNOL ETABONATE
  16. MOUNJARO [Concomitant]
     Active Substance: TIRZEPATIDE
  17. FUROSEMIDE [Concomitant]
     Active Substance: FUROSEMIDE
  18. AMLODIPINE [Concomitant]
     Active Substance: AMLODIPINE BESYLATE

REACTIONS (5)
  - Corneal deposits [Not Recovered/Not Resolved]
  - Headache [Unknown]
  - Lacrimation increased [Recovering/Resolving]
  - Intraocular pressure test abnormal [Recovering/Resolving]
  - Off label use [Unknown]

NARRATIVE: CASE EVENT DATE: 20250204
